FAERS Safety Report 9596916 (Version 1)
Quarter: 2013Q4

REPORT INFORMATION
  Report Type: Spontaneous
  Country: GB (occurrence: GB)
  Receive Date: 20131004
  Receipt Date: 20131004
  Transmission Date: 20140711
  Serious: Yes (Hospitalization, Other)
  Sender: FDA-Public Use
  Company Number: GB-ACTAVIS-2013-17392

PATIENT
  Age: 87 Year
  Sex: Male

DRUGS (6)
  1. PHENYTOIN (AMALLC) [Suspect]
     Indication: EPILEPSY
     Dosage: 200 MG, DAILY
     Route: 065
  2. PHENYTOIN (AMALLC) [Suspect]
     Dosage: 100 MG, DAILY
     Route: 065
  3. ISONIAZID [Concomitant]
     Indication: TUBERCULOSIS BLADDER
     Dosage: UNK
     Route: 065
  4. RIFAMPICIN [Concomitant]
     Indication: TUBERCULOSIS BLADDER
     Dosage: UNK
     Route: 065
  5. ETAMBUTOL [Interacting]
     Indication: TUBERCULOSIS BLADDER
     Dosage: UNK
     Route: 065
  6. PYRAZINAMIDE [Concomitant]
     Indication: TUBERCULOSIS BLADDER
     Dosage: UNK
     Route: 065

REACTIONS (11)
  - Ataxia [Recovered/Resolved]
  - Confusional state [Recovered/Resolved]
  - Dysphagia [Recovered/Resolved]
  - Dysarthria [Recovered/Resolved]
  - Nystagmus [Recovered/Resolved]
  - Past-pointing [Recovered/Resolved]
  - Intention tremor [Recovered/Resolved]
  - Diplopia [Unknown]
  - Dizziness [Unknown]
  - Nausea [Unknown]
  - Vomiting [Unknown]
